FAERS Safety Report 6264075-X (Version None)
Quarter: 2009Q3

REPORT INFORMATION
  Report Type: 
  Country: None (occurrence: None)
  Receive Date: 20090708
  Receipt Date: 20090708
  Transmission Date: 20100115
  Serious: No
  Sender: FDA-Public Use
  Company Number: None

PATIENT
  Age: 56 Year
  Sex: Female
  Weight: 86.1834 kg

DRUGS (1)
  1. ZICAM NASEL GEL [Suspect]
     Indication: NASOPHARYNGITIS
     Dosage: NASAL
     Route: 045
     Dates: start: 20050301, end: 20050307

REACTIONS (4)
  - ANOSMIA [None]
  - DYSGEUSIA [None]
  - HYPERSENSITIVITY [None]
  - NASAL DISCOMFORT [None]
